FAERS Safety Report 8410808 (Version 2)
Quarter: 2013Q2

REPORT INFORMATION
  Report Type: Spontaneous
  Country: US (occurrence: None)
  Receive Date: 20111227
  Receipt Date: 20120426
  Transmission Date: 20140414
  Serious: Yes (Other)
  Sender: FDA-Public Use
  Company Number: PHEH2011US07433

PATIENT
  Age: 41 Year
  Sex: Female
  Weight: 145 kg

DRUGS (11)
  1. GILENYA [Suspect]
     Indication: MULTIPLE SCLEROSIS
     Dosage: 0.5 MG, QD, ORAL
     Route: 048
     Dates: start: 20111011, end: 20111019
  2. MAXZIDE [Concomitant]
  3. NEURONTIN [Concomitant]
  4. TENORMIN (ATENOLOL) [Concomitant]
  5. DIGESTIVE ENZYMES (BETAINE HYDROCHLORIDE, BROMELAINS, CELLULASE, PANCREATIN, PAPAIN) [Concomitant]
  6. PRILOSEC [Concomitant]
  7. BETA BLOCKING AGENTS (NO INGREDIENTS/SUBSTANCES) [Concomitant]
  8. ALEVE (NAPROXEN SODIUM) [Concomitant]
  9. VITAMIN D (ERGOCALCIFEROL) [Concomitant]
  10. DITROPAN (OXYBUTYNIN HYDROCHLORIDE) [Concomitant]
  11. ATENOLOL (ATENOLOL) [Concomitant]

REACTIONS (10)
  - POLLAKIURIA [None]
  - PYREXIA [None]
  - GAIT DISTURBANCE [None]
  - INSOMNIA [None]
  - HEADACHE [None]
  - COUGH [None]
  - DYSPNOEA EXERTIONAL [None]
  - BACK PAIN [None]
  - BLOOD PRESSURE INCREASED [None]
  - MICTURITION URGENCY [None]
